FAERS Safety Report 22151545 (Version 4)
Quarter: 2025Q3

REPORT INFORMATION
  Report Type: Report from Study
  Country: CA (occurrence: CA)
  Receive Date: 20230329
  Receipt Date: 20250709
  Transmission Date: 20251021
  Serious: Yes (Other)
  Sender: TAKEDA
  Company Number: CA-TAKEDA-2021TUS047341

PATIENT
  Age: 36 Year
  Sex: Female

DRUGS (7)
  1. VEDOLIZUMAB [Suspect]
     Active Substance: VEDOLIZUMAB
     Indication: Colitis ulcerative
  2. VEDOLIZUMAB [Suspect]
     Active Substance: VEDOLIZUMAB
  3. VEDOLIZUMAB [Suspect]
     Active Substance: VEDOLIZUMAB
  4. VEDOLIZUMAB [Suspect]
     Active Substance: VEDOLIZUMAB
  5. VEDOLIZUMAB [Suspect]
     Active Substance: VEDOLIZUMAB
  6. VEDOLIZUMAB [Suspect]
     Active Substance: VEDOLIZUMAB
  7. VYVANSE [Suspect]
     Active Substance: LISDEXAMFETAMINE DIMESYLATE
     Indication: Product used for unknown indication

REACTIONS (14)
  - Lower respiratory tract infection [Not Recovered/Not Resolved]
  - Abortion spontaneous [Recovering/Resolving]
  - Retained products of conception [Recovering/Resolving]
  - Sinus congestion [Unknown]
  - Illness [Not Recovered/Not Resolved]
  - Viral infection [Unknown]
  - Pregnancy [Recovered/Resolved]
  - Myalgia [Unknown]
  - Malaise [Not Recovered/Not Resolved]
  - Headache [Unknown]
  - Nasopharyngitis [Not Recovered/Not Resolved]
  - Oropharyngeal pain [Unknown]
  - Cough [Unknown]
  - Arthralgia [Unknown]

NARRATIVE: CASE EVENT DATE: 20210726
